FAERS Safety Report 4908993-0 (Version None)
Quarter: 2006Q1

REPORT INFORMATION
  Report Type: 
  Country: None (occurrence: None)
  Receive Date: 20060209
  Receipt Date: 20060123
  Transmission Date: 20060701
  Serious: Yes (Hospitalization, Other)
  Sender: FDA-Public Use
  Company Number: US200601002065

PATIENT
  Age: 62 Year
  Sex: Female
  Weight: 65.8 kg

DRUGS (2)
  1. EVISTA [Suspect]
     Indication: OSTEOPOROSIS
     Dosage: SEE IMAGE
     Route: 048
     Dates: start: 20001201, end: 20021201
  2. . [Concomitant]

REACTIONS (3)
  - ARTHRALGIA [None]
  - INTENTIONAL DRUG MISUSE [None]
  - OSTEONECROSIS [None]
